FAERS Safety Report 4668644-X (Version None)
Quarter: 2005Q2

REPORT INFORMATION
  Report Type: 
  Country: None (occurrence: None)
  Receive Date: 20050523
  Receipt Date: 20050512
  Transmission Date: 20051028
  Serious: Yes (Other)
  Sender: FDA-Public Use
  Company Number: US-KINGPHARMUSA00001-K200500625

PATIENT
  Age: 37 Year
  Sex: Female

DRUGS (1)
  1. SEPTRA [Suspect]
     Dosage: UNK, BID
     Route: 048

REACTIONS (3)
  - RASH [None]
  - URTICARIA [None]
  - WHEEZING [None]
